FAERS Safety Report 14978570 (Version 1)
Quarter: 2018Q2

REPORT INFORMATION
  Report Type: Spontaneous
  Country: US (occurrence: US)
  Receive Date: 20180515
  Receipt Date: 20180515
  Transmission Date: 20180711
  Serious: Yes (Hospitalization)
  Sender: FDA-Public Use
  Company Number: None

PATIENT
  Age: 58 Year
  Sex: Male

DRUGS (1)
  1. DOCETAXEL. [Suspect]
     Active Substance: DOCETAXEL
     Indication: PROSTATE CANCER
     Route: 042
     Dates: start: 20180316, end: 20180413

REACTIONS (4)
  - Fatigue [None]
  - Pain [None]
  - Unevaluable event [None]
  - Oedema peripheral [None]

NARRATIVE: CASE EVENT DATE: 20180504
